FAERS Safety Report 25417207 (Version 1)
Quarter: 2025Q2

REPORT INFORMATION
  Report Type: Spontaneous
  Country: US (occurrence: None)
  Receive Date: 20250610
  Receipt Date: 20250610
  Transmission Date: 20250716
  Serious: Yes (Other)
  Sender: UMEDICA LABS
  Company Number: US-Umedica-000670

PATIENT
  Age: 7 Decade
  Sex: Male

DRUGS (10)
  1. CHLORTHALIDONE [Suspect]
     Active Substance: CHLORTHALIDONE
     Indication: Product used for unknown indication
  2. SODIUM ZIRCONIUM CYCLOSILICATE [Concomitant]
     Active Substance: SODIUM ZIRCONIUM CYCLOSILICATE
     Indication: Blood potassium increased
  3. FUROSEMIDE [Concomitant]
     Active Substance: FUROSEMIDE
     Indication: Polyuria
  4. AMLODIPINE [Concomitant]
     Active Substance: AMLODIPINE BESYLATE
  5. BUDESONIDE\FORMOTEROL [Concomitant]
     Active Substance: BUDESONIDE\FORMOTEROL
     Dosage: 160 MICROGRAM/4.5 G
  6. RISPERIDONE [Concomitant]
     Active Substance: RISPERIDONE
  7. SERTRALINE [Concomitant]
     Active Substance: SERTRALINE HYDROCHLORIDE
  8. TIOTROPIUM [Concomitant]
     Active Substance: TIOTROPIUM
  9. OXYCODONE [Concomitant]
     Active Substance: OXYCODONE
     Indication: Back pain
  10. TRAZODONE [Concomitant]
     Active Substance: TRAZODONE HYDROCHLORIDE
     Dosage: EVERY EVENING

REACTIONS (2)
  - Hyponatraemia [Unknown]
  - Hyperkalaemia [Unknown]
